FAERS Safety Report 6671608-8 (Version None)
Quarter: 2010Q2

REPORT INFORMATION
  Report Type: 
  Country: None (occurrence: None)
  Receive Date: 20100407
  Receipt Date: 20100331
  Transmission Date: 20101027
  Serious: Yes (Other)
  Sender: FDA-Public Use
  Company Number: CA-AMGEN-QUU403245

PATIENT
  Sex: Female

DRUGS (10)
  1. ARANESP [Suspect]
     Indication: DRUG USE FOR UNKNOWN INDICATION
     Route: 058
  2. NOVO-HYDRAZIDE [Concomitant]
     Route: 048
     Dates: end: 20100101
  3. FOLIC ACID [Concomitant]
     Route: 048
  4. UNSPECIFIED MEDICATION [Concomitant]
     Route: 048
  5. SYNTHROID [Concomitant]
     Route: 048
  6. PRAVASTATIN [Concomitant]
     Route: 048
  7. AMLODIPINE [Concomitant]
     Route: 048
  8. ARICEPT [Concomitant]
     Route: 048
  9. VITAMIN D3 [Concomitant]
     Route: 048
  10. ASPIRIN [Concomitant]
     Route: 048

REACTIONS (5)
  - BLOOD BLISTER [None]
  - BLOOD URINE PRESENT [None]
  - HAEMOGLOBIN DECREASED [None]
  - HAEMORRHAGE [None]
  - INCORRECT PRODUCT STORAGE [None]
